FAERS Safety Report 8477509-7 (Version None)
Quarter: 2012Q2

REPORT INFORMATION
  Report Type: 
  Country: None (occurrence: None)
  Receive Date: 20120629
  Receipt Date: 20120621
  Transmission Date: 20120825
  Serious: Yes (Other)
  Sender: FDA-Public Use
  Company Number: PHHY2012JP055263

PATIENT
  Age: 74 Year
  Sex: Male

DRUGS (4)
  1. RIVASTIGMINE [Suspect]
     Indication: DEMENTIA ALZHEIMER'S TYPE
     Dosage: 4.5 MG, DAILY
     Route: 062
     Dates: start: 20120518, end: 20120522
  2. AMLODIPINE [Concomitant]
  3. AVAPRO [Concomitant]
  4. GLYCYRON [Concomitant]

REACTIONS (3)
  - BLOOD PRESSURE DECREASED [None]
  - DECREASED APPETITE [None]
  - CIRCULATORY COLLAPSE [None]
